FAERS Safety Report 8614219-7 (Version None)
Quarter: 2012Q3

REPORT INFORMATION
  Report Type: 
  Country: None (occurrence: None)
  Receive Date: 20120823
  Receipt Date: 20120813
  Transmission Date: 20120928
  Serious: Yes (Other)
  Sender: FDA-Public Use
  Company Number: US-JNJFOC-20120709213

PATIENT
  Sex: Male
  Weight: 69.85 kg

DRUGS (1)
  1. STELARA [Suspect]
     Indication: PSORIASIS
     Dosage: TOTAL NUMBER OF INJECTIONS RECEIVED WAS 2
     Route: 058
     Dates: start: 20120118, end: 20120228

REACTIONS (2)
  - OPTIC ISCHAEMIC NEUROPATHY [None]
  - BLINDNESS UNILATERAL [None]
